FAERS Safety Report 25091939 (Version 2)
Quarter: 2025Q3

REPORT INFORMATION
  Report Type: Report from Study
  Country: CA (occurrence: CA)
  Receive Date: 20250318
  Receipt Date: 20250905
  Transmission Date: 20251021
  Serious: Yes (Death, Hospitalization, Other)
  Sender: ABBVIE
  Company Number: CA-ABBVIE-6183712

PATIENT
  Age: 56 Year
  Sex: Male

DRUGS (1)
  1. HUMIRA [Suspect]
     Active Substance: ADALIMUMAB
     Indication: Crohn^s disease
     Dosage: FORM STRENGTH: 40 MILLIGRAM
     Route: 058

REACTIONS (6)
  - Disease complication [Fatal]
  - Neoplasm malignant [Unknown]
  - Hepatic cancer [Unknown]
  - Obstruction [Unknown]
  - Pneumonia [Fatal]
  - Gastrointestinal neoplasm [Fatal]

NARRATIVE: CASE EVENT DATE: 20231201
